FAERS Safety Report 14873835 (Version 5)
Quarter: 2018Q4

REPORT INFORMATION
  Report Type: Spontaneous
  Country: US (occurrence: US)
  Receive Date: 20180510
  Receipt Date: 20181224
  Transmission Date: 20190204
  Serious: Yes (Death, Hospitalization, Other)
  Sender: FDA-Public Use
  Company Number: US-JNJFOC-20180512072

PATIENT
  Age: 60 Year
  Sex: Female

DRUGS (60)
  1. COLACE [Concomitant]
     Active Substance: DOCUSATE SODIUM
     Indication: CONSTIPATION
     Route: 048
  2. DOXYCYCLINE. [Concomitant]
     Active Substance: DOXYCYCLINE
     Route: 048
  3. PROPAFENONE. [Concomitant]
     Active Substance: PROPAFENONE
     Route: 048
  4. PROGRAF [Concomitant]
     Active Substance: TACROLIMUS\TACROLIMUS ANHYDROUS
     Route: 048
  5. BENADRYL [Concomitant]
     Active Substance: DIPHENHYDRAMINE HYDROCHLORIDE
     Route: 048
  6. SUBLIMAZE [Concomitant]
     Active Substance: FENTANYL CITRATE
  7. LASIX [Concomitant]
     Active Substance: FUROSEMIDE
     Route: 041
  8. ROXICODONE [Concomitant]
     Active Substance: OXYCODONE HYDROCHLORIDE
     Indication: PAIN
     Route: 048
  9. IMBRUVICA [Suspect]
     Active Substance: IBRUTINIB
     Indication: GRAFT VERSUS HOST DISEASE
     Route: 048
     Dates: start: 20180413, end: 20180418
  10. URSODIOL. [Concomitant]
     Active Substance: URSODIOL
  11. NORVASC [Concomitant]
     Active Substance: AMLODIPINE BESYLATE
     Route: 048
  12. ACTIGALL [Concomitant]
     Active Substance: URSODIOL
     Route: 048
  13. HEPARIN [Concomitant]
     Active Substance: HEPARIN SODIUM
     Route: 041
  14. HUMALIN [Concomitant]
     Active Substance: INSULIN NOS
     Route: 058
  15. DEFINITY [Concomitant]
     Active Substance: PERFLUTREN
     Indication: SEDATION
     Route: 040
  16. VANCOCIN [Concomitant]
     Active Substance: VANCOMYCIN HYDROCHLORIDE
     Route: 040
  17. ATIVAN [Concomitant]
     Active Substance: LORAZEPAM
     Indication: NAUSEA
     Route: 048
  18. ATIVAN [Concomitant]
     Active Substance: LORAZEPAM
     Indication: ANXIETY
     Route: 048
  19. RINGERS LACTATE [Concomitant]
     Active Substance: CALCIUM CHLORIDE\POTASSIUM CHLORIDE\SODIUM LACTATE
     Route: 040
  20. DEFINITY [Concomitant]
     Active Substance: PERFLUTREN
     Indication: INJURY
     Route: 040
  21. MYCOSTATIN [Concomitant]
     Active Substance: NYSTATIN
  22. PREDNISONE. [Concomitant]
     Active Substance: PREDNISONE
     Route: 048
  23. BACTRIM DS [Concomitant]
     Active Substance: SULFAMETHOXAZOLE\TRIMETHOPRIM
  24. PROGRAF [Concomitant]
     Active Substance: TACROLIMUS\TACROLIMUS ANHYDROUS
     Route: 048
  25. CALCIUM CHLORIDE. [Concomitant]
     Active Substance: CALCIUM CHLORIDE
     Route: 041
  26. GLUCAGON. [Concomitant]
     Active Substance: GLUCAGON
     Route: 058
  27. IMBRUVICA [Suspect]
     Active Substance: IBRUTINIB
     Indication: GRAFT VERSUS HOST DISEASE
     Route: 048
  28. ZOVIRAX [Concomitant]
     Active Substance: ACYCLOVIR
     Route: 048
  29. LEVOFLOXACIN. [Concomitant]
     Active Substance: LEVOFLOXACIN
  30. NOVOLOG [Concomitant]
     Active Substance: INSULIN ASPART
     Route: 058
  31. OXYCONTIN [Concomitant]
     Active Substance: OXYCODONE HYDROCHLORIDE
     Route: 048
  32. BIOTENE NOS [Concomitant]
     Active Substance: CETYLPYRIDINIUM CHLORIDE OR SODIUM FLUORIDE OR SODIUM MONOFLUOROPHOSPHATE OR GLUCOSE OXIDASE\LACTOFERRIN\LACTOPEROXIDASE BOVINE\LYSOZYME
     Route: 048
  33. DILAUDID [Concomitant]
     Active Substance: HYDROMORPHONE HYDROCHLORIDE
     Route: 040
  34. MORPHINE [Concomitant]
     Active Substance: MORPHINE
     Route: 040
  35. ZOFRAN [Concomitant]
     Active Substance: ONDANSETRON HYDROCHLORIDE
     Route: 040
  36. LIDOCAINE. [Concomitant]
     Active Substance: LIDOCAINE
     Route: 040
  37. DIFLUCAN [Concomitant]
     Active Substance: FLUCONAZOLE
     Route: 048
  38. ATIVAN [Concomitant]
     Active Substance: LORAZEPAM
     Indication: ANXIETY
     Route: 048
  39. OXYCONTIN [Concomitant]
     Active Substance: OXYCODONE HYDROCHLORIDE
     Route: 048
  40. VALTREX [Concomitant]
     Active Substance: VALACYCLOVIR HYDROCHLORIDE
     Route: 048
  41. SODIUM CHLORIDE. [Concomitant]
     Active Substance: SODIUM CHLORIDE
     Route: 041
  42. LOVENOX [Concomitant]
     Active Substance: ENOXAPARIN SODIUM
     Route: 058
  43. APRESOLINE HYDROCHLORIDE [Concomitant]
     Active Substance: HYDRALAZINE HYDROCHLORIDE
     Route: 048
  44. UVADEX [Concomitant]
     Active Substance: METHOXSALEN
     Route: 040
  45. KEFLEX [Concomitant]
     Active Substance: CEPHALEXIN
     Route: 048
  46. ZOVIRAX [Concomitant]
     Active Substance: ACYCLOVIR
     Route: 048
  47. VITAMIN D3 [Concomitant]
     Active Substance: CHOLECALCIFEROL
     Route: 048
  48. EUCERIN [Concomitant]
     Active Substance: ENSULIZOLE\EUCERIN\OCTINOXATE\OCTISALATE\TITANIUM DIOXIDE\ZINC OXIDE
     Route: 061
  49. LASIX [Concomitant]
     Active Substance: FUROSEMIDE
  50. ATIVAN [Concomitant]
     Active Substance: LORAZEPAM
     Indication: NAUSEA
     Route: 048
  51. OMNIPAQUE [Concomitant]
     Active Substance: IOHEXOL
     Route: 041
  52. SOLU-MEDROL [Concomitant]
     Active Substance: METHYLPREDNISOLONE SODIUM SUCCINATE
     Route: 040
  53. VERSED [Concomitant]
     Active Substance: MIDAZOLAM HYDROCHLORIDE
     Indication: SEDATION
     Route: 040
  54. TACROLIMUS. [Concomitant]
     Active Substance: TACROLIMUS
  55. NORVASC [Concomitant]
     Active Substance: AMLODIPINE BESYLATE
     Route: 048
  56. LANTUS [Concomitant]
     Active Substance: INSULIN GLARGINE
     Route: 058
  57. ACDA [Concomitant]
  58. DEXTROSE. [Concomitant]
     Active Substance: DEXTROSE
  59. BENADRYL [Concomitant]
     Active Substance: DIPHENHYDRAMINE HYDROCHLORIDE
     Route: 040
  60. MAGNESIUM SULFATE. [Concomitant]
     Active Substance: MAGNESIUM SULFATE
     Route: 041

REACTIONS (15)
  - Cardiomegaly [Unknown]
  - Atrial fibrillation [Unknown]
  - Acute kidney injury [Unknown]
  - Vomiting [Not Recovered/Not Resolved]
  - Cellulitis [Unknown]
  - Fluid overload [Unknown]
  - Nausea [Not Recovered/Not Resolved]
  - Diastolic dysfunction [Unknown]
  - Product use issue [Unknown]
  - Respiratory failure [Fatal]
  - Pain in extremity [Unknown]
  - Dehydration [Not Recovered/Not Resolved]
  - Multiple organ dysfunction syndrome [Fatal]
  - Septic shock [Unknown]
  - Off label use [Unknown]

NARRATIVE: CASE EVENT DATE: 20180413
